FAERS Safety Report 11107425 (Version 2)
Quarter: 2015Q2

REPORT INFORMATION
  Report Type: Spontaneous
  Country: ES (occurrence: ES)
  Receive Date: 20150512
  Receipt Date: 20150609
  Transmission Date: 20150821
  Serious: Yes (Death, Hospitalization, Other)
  Sender: FDA-Public Use
  Company Number: ES-AMGEN-ESPSP2015044454

PATIENT
  Age: 75 Year
  Sex: Female

DRUGS (4)
  1. NPLATE [Suspect]
     Active Substance: ROMIPLOSTIM
     Indication: IMMUNE THROMBOCYTOPENIC PURPURA
     Dosage: 1 MUG/KG, UNK
     Route: 065
  2. INSULIN [Concomitant]
     Active Substance: INSULIN NOS
     Indication: TYPE 2 DIABETES MELLITUS
  3. ARANESP [Suspect]
     Active Substance: DARBEPOETIN ALFA
     Indication: NEPHROGENIC ANAEMIA
     Dosage: UNK
     Route: 065
  4. SINTROM [Concomitant]
     Active Substance: ACENOCOUMAROL

REACTIONS (25)
  - Thrombotic stroke [Fatal]
  - Transfusion [Unknown]
  - Lacunar infarction [Unknown]
  - Atrial fibrillation [Unknown]
  - Hypertensive crisis [Unknown]
  - Gingival bleeding [Unknown]
  - Gout [Unknown]
  - Platelet count abnormal [Unknown]
  - Petechiae [Unknown]
  - Anaemia [Unknown]
  - Cerebral ischaemia [Unknown]
  - Substance-induced psychotic disorder [Unknown]
  - Ischaemic stroke [Unknown]
  - Arnold-Chiari malformation [Unknown]
  - Echinococciasis [Unknown]
  - Epistaxis [Unknown]
  - Thrombocytopenia [Unknown]
  - Regurgitation [Unknown]
  - Pulmonary hypertension [Unknown]
  - Renal impairment [Unknown]
  - Goitre [Unknown]
  - Contusion [Unknown]
  - Retroperitoneal haematoma [Unknown]
  - Cardiac failure [Unknown]
  - Chronic kidney disease [Unknown]

NARRATIVE: CASE EVENT DATE: 200909
